FAERS Safety Report 4961403-X (Version None)
Quarter: 2006Q1

REPORT INFORMATION
  Report Type: 
  Country: None (occurrence: None)
  Receive Date: 20060329
  Receipt Date: 20060314
  Transmission Date: 20060701
  Serious: Yes (Life-Threatening, Hospitalization)
  Sender: FDA-Public Use
  Company Number: GXKR2006JP01466

PATIENT
  Age: 92 Year
  Sex: Male

DRUGS (6)
  1. VANCOMYCIN [Suspect]
     Indication: STAPHYLOCOCCAL SEPSIS
     Dosage: 1 G, QD,
  2. AMPICILLIN [Suspect]
  3. CEFTAZIDIME (NGX) (CEFTAZIDIME) [Suspect]
  4. TEICOPLANIN (TEICOPLANIN) [Suspect]
     Indication: ENTEROCOCCAL SEPSIS
     Dosage: 200 MG, QD,
  5. PANIPENEM/BETAMIPRON (PANIPENEM/BETAMIPRON) [Suspect]
     Indication: PNEUMONIA
  6. EPINASTINE (EPINASTINE) [Concomitant]

REACTIONS (14)
  - ALANINE AMINOTRANSFERASE INCREASED [None]
  - ASPARTATE AMINOTRANSFERASE INCREASED [None]
  - CARDIAC FAILURE CONGESTIVE [None]
  - EJECTION FRACTION DECREASED [None]
  - ELECTROCARDIOGRAM ABNORMAL [None]
  - ELECTROCARDIOGRAM T WAVE INVERSION [None]
  - EOSINOPHILIA [None]
  - HEART RATE INCREASED [None]
  - LIVER DISORDER [None]
  - PRURITUS [None]
  - RASH [None]
  - SARCOIDOSIS [None]
  - URTICARIA [None]
  - VENTRICULAR EXTRASYSTOLES [None]
